FAERS Safety Report 11098700 (Version 2)
Quarter: 2015Q3

REPORT INFORMATION
  Report Type: Report from Study
  Country: FR (occurrence: FR)
  Receive Date: 20150507
  Receipt Date: 20150928
  Transmission Date: 20151125
  Serious: Yes (Hospitalization)
  Sender: FDA-Public Use
  Company Number: FR-EXELIXIS-XL18415005394

PATIENT
  Age: 67 Year
  Sex: Male

DRUGS (12)
  1. DIPROLENE [Concomitant]
     Active Substance: BETAMETHASONE DIPROPIONATE
  2. XL184 [Suspect]
     Active Substance: CABOZANTINIB
     Indication: RENAL CELL CARCINOMA
     Dosage: 60 MG, QD
     Route: 048
     Dates: start: 20140422
  3. FLECAINE [Concomitant]
     Active Substance: FLECAINIDE
  4. XL184 [Suspect]
     Active Substance: CABOZANTINIB
     Dosage: 40 MG, QD
     Route: 048
     Dates: end: 20141229
  5. KARDEGIC [Concomitant]
     Active Substance: ASPIRIN LYSINE
  6. DAFALGAN [Concomitant]
     Active Substance: ACETAMINOPHEN
  7. CLARELUX [Concomitant]
  8. BISOPROLOL [Concomitant]
     Active Substance: BISOPROLOL
  9. SIMVASTATINE [Concomitant]
     Active Substance: SIMVASTATIN
  10. INEXIUM [Concomitant]
     Active Substance: ESOMEPRAZOLE
  11. XL184 [Suspect]
     Active Substance: CABOZANTINIB
     Dosage: 40 MG, QD
     Route: 048
     Dates: start: 20150113
  12. SMECTA [Concomitant]
     Active Substance: MONTMORILLONITE

REACTIONS (1)
  - Atrial fibrillation [Recovered/Resolved]

NARRATIVE: CASE EVENT DATE: 20141230
